FAERS Safety Report 25188079 (Version 5)
Quarter: 2025Q3

REPORT INFORMATION
  Report Type: Spontaneous
  Country: JP (occurrence: JP)
  Receive Date: 20250411
  Receipt Date: 20250922
  Transmission Date: 20251021
  Serious: Yes (Death, Hospitalization, Other)
  Sender: ROCHE
  Company Number: JP-CHUGAI-2025011311

PATIENT
  Age: 89 Year
  Sex: Male
  Weight: 63 kg

DRUGS (2)
  1. TECENTRIQ [Suspect]
     Active Substance: ATEZOLIZUMAB
     Indication: Hepatocellular carcinoma
     Route: 042
     Dates: start: 20230405, end: 20250217
  2. AVASTIN [Suspect]
     Active Substance: BEVACIZUMAB
     Indication: Hepatocellular carcinoma
     Route: 042
     Dates: start: 20230405, end: 20250217

REACTIONS (6)
  - Stomatitis [Not Recovered/Not Resolved]
  - Cheilitis [Not Recovered/Not Resolved]
  - Hand dermatitis [Not Recovered/Not Resolved]
  - Staphylococcal sepsis [Fatal]
  - Altered state of consciousness [Fatal]
  - General physical health deterioration [Unknown]

NARRATIVE: CASE EVENT DATE: 20250101
